FAERS Safety Report 9281047 (Version 1)
Quarter: 2013Q2

REPORT INFORMATION
  Report Type: Report from Study
  Country: US (occurrence: US)
  Receive Date: 20130509
  Receipt Date: 20130509
  Transmission Date: 20140414
  Serious: Yes (Hospitalization)
  Sender: FDA-Public Use
  Company Number: US-GLAXOSMITHKLINE-Z0019091A

PATIENT
  Age: 64 Year
  Sex: Male
  Weight: 64.4 kg

DRUGS (3)
  1. FLUTICASONE PROPIONATE + SALMETEROL XINAFOATE [Suspect]
     Indication: CHRONIC OBSTRUCTIVE PULMONARY DISEASE
     Route: 055
     Dates: start: 20130104, end: 20130218
  2. AMLODIPINE [Concomitant]
     Indication: HYPERTENSION
     Dosage: 5MG PER DAY
     Route: 048
     Dates: start: 20130319
  3. VARENICLINE TARTRATE [Concomitant]
     Indication: EX-TOBACCO USER
     Dosage: .5MG TWICE PER DAY
     Route: 048
     Dates: start: 20130319

REACTIONS (1)
  - Chronic obstructive pulmonary disease [Recovered/Resolved]
